FAERS Safety Report 12169778 (Version 1)
Quarter: 2016Q1

REPORT INFORMATION
  Report Type: Spontaneous
  Country: TR (occurrence: TR)
  Receive Date: 20160310
  Receipt Date: 20160310
  Transmission Date: 20160526
  Serious: Yes (Hospitalization)
  Sender: FDA-Public Use
  Company Number: TR-B.I. PHARMACEUTICALS,INC./RIDGEFIELD-2016-BI-13424BI

PATIENT
  Age: 75 Year
  Sex: Male

DRUGS (3)
  1. COMBIVENT [Suspect]
     Active Substance: ALBUTEROL SULFATE\IPRATROPIUM BROMIDE
     Indication: CHRONIC OBSTRUCTIVE PULMONARY DISEASE
     Route: 055
  2. INFLAMMIDE 200 15ML BOEHRINGER INGELHEIM [Suspect]
     Active Substance: BUDESONIDE
     Indication: CHRONIC OBSTRUCTIVE PULMONARY DISEASE
     Dosage: 800 MCG
     Route: 055
  3. SPIRIVA [Suspect]
     Active Substance: TIOTROPIUM BROMIDE MONOHYDRATE
     Indication: CHRONIC OBSTRUCTIVE PULMONARY DISEASE
     Dosage: 18 MCG
     Route: 055

REACTIONS (13)
  - Red blood cell sedimentation rate increased [None]
  - Haematocrit decreased [None]
  - C-reactive protein increased [None]
  - Haemoglobin decreased [None]
  - Vitamin D decreased [None]
  - Blood albumin decreased [None]
  - Pain [None]
  - Blood parathyroid hormone increased [None]
  - Hip fracture [Recovered/Resolved]
  - Osteoporosis [None]
  - Blood calcium decreased [None]
  - Calcium ionised decreased [None]
  - Blood alkaline phosphatase increased [None]
